FAERS Safety Report 6110124-9 (Version None)
Quarter: 2009Q1

REPORT INFORMATION
  Report Type: 
  Country: None (occurrence: None)
  Receive Date: 20090306
  Receipt Date: 20090306
  Transmission Date: 20090719
  Serious: No
  Sender: FDA-Public Use
  Company Number: None

PATIENT
  Sex: Female
  Weight: 86.14 kg

DRUGS (9)
  1. SIMVASTATIN [Suspect]
     Dosage: 20MG TABLET 20 MG QHS ORAL
     Route: 048
     Dates: start: 20090126, end: 20090305
  2. ASPIRIN [Concomitant]
  3. BENEDRYL ORAL (DIPHENHYDRAMINE ORAL) [Concomitant]
  4. CALCIUM + D (CALCIUM CARBONATE)/VIT D [Concomitant]
  5. CLOBETASOL PROPIONATE [Concomitant]
  6. ELIDEL [Concomitant]
  7. FOSAMAX [Concomitant]
  8. MVI (MULTIVITAMINS) [Concomitant]
  9. ZYRTEC [Concomitant]

REACTIONS (1)
  - MUSCLE SPASMS [None]
